FAERS Safety Report 14233763 (Version 2)
Quarter: 2017Q4

REPORT INFORMATION
  Report Type: Report from Study
  Country: US (occurrence: US)
  Receive Date: 20171128
  Receipt Date: 20171208
  Transmission Date: 20180321
  Serious: Yes (Hospitalization)
  Sender: FDA-Public Use
  Company Number: US-KADMON PHARMACEUTICALS, LLC-KAD201711-001238

PATIENT

DRUGS (4)
  1. GRAZOPREVIR [Suspect]
     Active Substance: GRAZOPREVIR
     Indication: HEPATITIS C
     Dosage: TABLET
  2. RUZASVIR [Suspect]
     Active Substance: RUZASVIR
     Indication: HEPATITIS C
     Dosage: TABLET
  3. RIBAVIRIN. [Suspect]
     Active Substance: RIBAVIRIN
     Indication: HEPATITIS C
  4. UPRIFOSBUVIR [Suspect]
     Active Substance: UPRIFOSBUVIR
     Indication: HEPATITIS C
     Dosage: TABLET

REACTIONS (4)
  - Vomiting [Recovering/Resolving]
  - Tachycardia [Recovering/Resolving]
  - Nausea [Recovered/Resolved]
  - Drug effect incomplete [Unknown]
